FAERS Safety Report 4333674-4 (Version None)
Quarter: 2004Q2

REPORT INFORMATION
  Report Type: 
  Country: None (occurrence: None)
  Receive Date: 20040406
  Receipt Date: 20040406
  Transmission Date: 20050107
  Serious: No
  Sender: FDA-Public Use
  Company Number: None

PATIENT
  Age: 50 Year
  Sex: Male
  Weight: 90.7194 kg

DRUGS (1)
  1. PHENYTOIN [Suspect]
     Indication: HAEMORRHAGE
     Dosage: 1 GM IV
     Route: 042

REACTIONS (2)
  - INJECTION SITE REACTION [None]
  - PHLEBITIS [None]
